FAERS Safety Report 5794016-0 (Version None)
Quarter: 2008Q2

REPORT INFORMATION
  Report Type: 
  Country: None (occurrence: None)
  Receive Date: 20080627
  Receipt Date: 20080617
  Transmission Date: 20081010
  Serious: Yes (Other)
  Sender: FDA-Public Use
  Company Number: US-PFIZER INC-2008014128

PATIENT
  Age: 53 Year
  Sex: Female

DRUGS (5)
  1. CHANTIX [Suspect]
     Indication: SMOKING CESSATION THERAPY
  2. CYMBALTA [Concomitant]
  3. FLEXERIL [Concomitant]
     Indication: BACK PAIN
  4. PERCOCET [Concomitant]
     Indication: MUSCULOSKELETAL PAIN
  5. TRAZODONE HCL [Concomitant]
     Indication: INSOMNIA

REACTIONS (7)
  - ARRHYTHMIA [None]
  - CHEST PAIN [None]
  - DEPRESSION [None]
  - HYPERTENSION [None]
  - NAUSEA [None]
  - STRESS [None]
  - TREATMENT NONCOMPLIANCE [None]
